FAERS Safety Report 6431051-3 (Version None)
Quarter: 2009Q4

REPORT INFORMATION
  Report Type: 
  Country: None (occurrence: None)
  Receive Date: 20091106
  Receipt Date: 20091028
  Transmission Date: 20100525
  Serious: Yes (Hospitalization)
  Sender: FDA-Public Use
  Company Number: DE-TEVA-214073ISR

PATIENT
  Age: 60 Year
  Sex: Male

DRUGS (4)
  1. FLUCONAZOLE [Suspect]
     Indication: PNEUMONIA
     Dates: start: 20090611, end: 20090622
  2. AMOXICILLIN W/CLAVULANATE POTASSIUM [Suspect]
     Indication: ERYSIPELAS
     Dates: start: 20090728, end: 20090729
  3. IMIPENEM [Suspect]
     Indication: PNEUMONIA
     Dates: start: 20090611, end: 20090622
  4. BENZYLPENICILLIN [Suspect]
     Indication: ERYSIPELAS
     Dates: start: 20090429, end: 20090501

REACTIONS (1)
  - PANCYTOPENIA [None]
